FAERS Safety Report 8881456 (Version 1)
Quarter: 2012Q4

REPORT INFORMATION
  Report Type: 
  Country: US (occurrence: US)
  Receive Date: 20121101
  Receipt Date: 20121101
  Transmission Date: 20130627
  Serious: Yes (Death)
  Sender: FDA-Public Use
  Company Number: US-INCYTE CORPORATION-2012IN002171

PATIENT
  Sex: Male

DRUGS (4)
  1. JAKAFI [Suspect]
     Indication: MYELOFIBROSIS
     Dosage: 15 mg, bid
     Route: 048
  2. AMBIEN [Concomitant]
     Dosage: 5 mg, prn
  3. IBUPROFEN [Concomitant]
     Dosage: 400 mg, bid, prn
  4. HYDROCODONE W/APAP [Concomitant]
     Dosage: 5/500, prn

REACTIONS (1)
  - Death [Fatal]
